FAERS Safety Report 5895219-7 (Version None)
Quarter: 2008Q3

REPORT INFORMATION
  Report Type: 
  Country: None (occurrence: None)
  Receive Date: 20080924
  Receipt Date: 20080917
  Transmission Date: 20090109
  Serious: Yes (Death)
  Sender: FDA-Public Use
  Company Number: A0741555A

PATIENT
  Age: 74 Year
  Sex: Female

DRUGS (3)
  1. ADVAIR DISKUS 100/50 [Suspect]
     Indication: ASTHMA
     Dosage: 2SPR SIX TIMES PER DAY
     Route: 055
  2. MIRTAZAPINE [Concomitant]
  3. LEXAPRO [Concomitant]

REACTIONS (6)
  - ANXIETY [None]
  - ASTHMA [None]
  - CARDIAC DISORDER [None]
  - CARDIOMEGALY [None]
  - OVERDOSE [None]
  - PHARMACEUTICAL PRODUCT COMPLAINT [None]
